FAERS Safety Report 8810211 (Version 5)
Quarter: 2013Q1

REPORT INFORMATION
  Report Type: Spontaneous
  Country: US (occurrence: US)
  Receive Date: 20120926
  Receipt Date: 20130226
  Transmission Date: 20140127
  Serious: Yes (Hospitalization, Other)
  Sender: FDA-Public Use
  Company Number: US-009507513-1203USA01067

PATIENT
  Sex: Female
  Weight: 76.64 kg

DRUGS (5)
  1. FOSAMAX [Suspect]
     Indication: OSTEOPOROSIS
     Dosage: 10 MG, QD
     Route: 048
     Dates: start: 199611
  2. FOSAMAX [Suspect]
     Dosage: 70 MG, QW
     Route: 048
     Dates: start: 20010906
  3. BONIVA [Suspect]
     Indication: OSTEOPOROSIS
     Dosage: 150 MG, UNK
     Route: 048
     Dates: start: 2005, end: 20100309
  4. ZYRTEC [Concomitant]
     Indication: HYPERSENSITIVITY
     Dosage: UNK
     Dates: start: 2004, end: 2009
  5. LOSARTAN POTASSIUM [Concomitant]
     Indication: HYPERTENSION

REACTIONS (19)
  - Intramedullary rod insertion [Unknown]
  - Renal failure [Unknown]
  - Femur fracture [Recovered/Resolved]
  - Low turnover osteopathy [Unknown]
  - Foot fracture [Unknown]
  - Bone density decreased [Unknown]
  - Tooth extraction [Unknown]
  - Osteopenia [Unknown]
  - Gait disturbance [Unknown]
  - Sleep disorder [Unknown]
  - Bursitis [Unknown]
  - Chronic sinusitis [Not Recovered/Not Resolved]
  - Nasal turbinate hypertrophy [Unknown]
  - Nasal mucosal discolouration [Unknown]
  - Pharyngeal erythema [Unknown]
  - Osteoarthritis [Unknown]
  - Trigger finger [Unknown]
  - Spinal osteoarthritis [Unknown]
  - Arthralgia [Unknown]
